FAERS Safety Report 5056808-5 (Version None)
Quarter: 2006Q2

REPORT INFORMATION
  Report Type: 
  Country: None (occurrence: None)
  Receive Date: 20060619
  Receipt Date: 20060112
  Transmission Date: 20061013
  Serious: Yes (Life-Threatening, Hospitalization, Disabling)
  Sender: FDA-Public Use
  Company Number: WAES 0601USA01533

PATIENT
  Age: 62 Year
  Sex: Male
  Weight: 80.2867 kg

DRUGS (10)
  1. COZAAR [Suspect]
     Indication: HYPERTENSION
     Dosage: 50 MG/DAILY/PO
     Route: 048
     Dates: start: 20010801, end: 20060101
  2. COZAAR [Suspect]
     Indication: HYPERTENSION
     Dosage: 50 MG/DAILY/PO
     Route: 048
     Dates: start: 20060120
  3. AZULFIDINE [Suspect]
     Indication: COLITIS ULCERATIVE
     Dosage: 1000 MG/QID/PO
     Route: 048
     Dates: start: 20050101
  4. BIAXIN [Concomitant]
  5. ZOCOR [Concomitant]
  6. DILTIAZEM HYDROCHLORIDE [Concomitant]
  7. FOLIC ACID [Concomitant]
  8. INFLUENZA VIRUS VACCINE (UNSPECI... [Concomitant]
  9. OMEGA-3 MARINE TRIGLYCERIDES [Concomitant]
  10. TERAZOSIN HYDROCHLORIDE [Concomitant]

REACTIONS (2)
  - HYPERSENSITIVITY [None]
  - RENAL FAILURE ACUTE [None]
